FAERS Safety Report 9989226 (Version 1)
Quarter: 2014Q1

REPORT INFORMATION
  Report Type: Spontaneous
  Country: FR (occurrence: FR)
  Receive Date: 20140310
  Receipt Date: 20140310
  Transmission Date: 20141002
  Serious: Yes (Hospitalization)
  Sender: FDA-Public Use
  Company Number: FR-JNJFOC-20140215242

PATIENT
  Age: 67 Year
  Sex: Male

DRUGS (5)
  1. HALDOL [Suspect]
     Indication: PSYCHOTIC DISORDER
     Route: 048
  2. NEORAL [Suspect]
     Indication: BONE MARROW FAILURE
     Route: 048
     Dates: start: 20131022, end: 20131213
  3. DANATROL [Suspect]
     Indication: BONE MARROW FAILURE
     Route: 048
     Dates: start: 20131029, end: 20131215
  4. LEPTICUR [Suspect]
     Indication: TREMOR
     Route: 048
     Dates: start: 201208
  5. LARGACTIL [Suspect]
     Indication: PSYCHOTIC DISORDER
     Route: 048

REACTIONS (2)
  - Urinary retention [Recovered/Resolved]
  - Renal failure acute [Recovered/Resolved]
